FAERS Safety Report 9129340 (Version 1)
Quarter: 2013Q1

REPORT INFORMATION
  Report Type: Spontaneous
  Country: US (occurrence: US)
  Receive Date: 20130228
  Receipt Date: 20130228
  Transmission Date: 20140127
  Serious: No
  Sender: FDA-Public Use
  Company Number: US-ABBOTT-13P-163-1046796-00

PATIENT
  Sex: Male

DRUGS (2)
  1. ANDROGEL 1.62% [Suspect]
     Indication: PRODUCT USED FOR UNKNOWN INDICATION
     Dosage: 60.75 MG DAILY
  2. ANDROGEL 1.62% [Suspect]
     Dosage: 60.75 MG DAILY

REACTIONS (4)
  - Testicular atrophy [Not Recovered/Not Resolved]
  - Feeling hot [Not Recovered/Not Resolved]
  - Anger [Not Recovered/Not Resolved]
  - Fatigue [Unknown]
